FAERS Safety Report 16451924 (Version 1)
Quarter: 2019Q2

REPORT INFORMATION
  Report Type: Spontaneous
  Country: ES (occurrence: ES)
  Receive Date: 20190619
  Receipt Date: 20190619
  Transmission Date: 20190711
  Serious: Yes (Other)
  Sender: FDA-Public Use
  Company Number: ES-TEVA-2019-ES-1065490

PATIENT
  Age: 72 Year
  Sex: Male

DRUGS (2)
  1. SYMBICORT [Interacting]
     Active Substance: BUDESONIDE\FORMOTEROL FUMARATE DIHYDRATE
     Route: 055
     Dates: start: 201905
  2. BUDESONIDA (2291A) [Suspect]
     Active Substance: BUDESONIDE
     Route: 055
     Dates: start: 201904

REACTIONS (3)
  - Product substitution error [Recovered/Resolved]
  - Fungal infection [Unknown]
  - Drug interaction [Unknown]

NARRATIVE: CASE EVENT DATE: 201905
